FAERS Safety Report 9949615 (Version 1)
Quarter: 2014Q1

REPORT INFORMATION
  Report Type: Spontaneous
  Country: CG (occurrence: CD)
  Receive Date: 20140304
  Receipt Date: 20140304
  Transmission Date: 20141002
  Serious: Yes (Hospitalization)
  Sender: FDA-Public Use
  Company Number: CG-009507513-1402COG012389

PATIENT
  Age: 35 Year
  Sex: Female

DRUGS (1)
  1. IVERMECTIN [Suspect]
     Indication: ONCHOCERCIASIS
     Dosage: 3 TABLETS, ONCE
     Route: 048
     Dates: start: 20131126, end: 20131126

REACTIONS (6)
  - Back pain [Recovered/Resolved]
  - Conjunctival haemorrhage [Recovered/Resolved]
  - Headache [Recovered/Resolved]
  - Asthenia [Recovered/Resolved]
  - Pyrexia [Recovered/Resolved]
  - Adverse event [Recovered/Resolved]
